FAERS Safety Report 16786317 (Version 3)
Quarter: 2019Q3

REPORT INFORMATION
  Report Type: Spontaneous
  Country: DE (occurrence: DE)
  Receive Date: 20190909
  Receipt Date: 20190916
  Transmission Date: 20191005
  Serious: Yes (Other)
  Sender: FDA-Public Use
  Company Number: DE-PFIZER INC-2019383761

PATIENT

DRUGS (11)
  1. METFORMIN [METFORMIN HYDROCHLORIDE] [Interacting]
     Active Substance: METFORMIN HYDROCHLORIDE
     Dosage: UNK
     Route: 065
  2. FUROSEMIDE. [Interacting]
     Active Substance: FUROSEMIDE
     Dosage: UNK
     Route: 065
  3. BISOPROLOL [Interacting]
     Active Substance: BISOPROLOL
     Dosage: UNK
     Route: 065
  4. RAMIPRIL. [Interacting]
     Active Substance: RAMIPRIL
     Dosage: UNK
     Route: 048
  5. XELEVIA [Interacting]
     Active Substance: SITAGLIPTIN PHOSPHATE
     Dosage: UNK
     Route: 065
  6. SHINGRIX [Interacting]
     Active Substance: RECOMBINANT VARICELLA ZOSTER VIRUS (VZV) GLYCOPROTEIN E
     Indication: PROPHYLAXIS
     Dosage: UNK
     Dates: start: 201905, end: 201905
  7. HCT [Interacting]
     Active Substance: HYDROCHLOROTHIAZIDE
     Dosage: UNK
     Route: 065
  8. NOAX [Interacting]
     Active Substance: TRAMADOL HYDROCHLORIDE
     Dosage: UNK
     Route: 065
  9. ATORVASTATIN CALCIUM. [Interacting]
     Active Substance: ATORVASTATIN CALCIUM
     Dosage: UNK
     Route: 065
  10. AMLODIPINE BESILATE [Interacting]
     Active Substance: AMLODIPINE BESYLATE
     Dosage: UNK
     Route: 065
  11. PANTOPRAZOLE [Suspect]
     Active Substance: PANTOPRAZOLE
     Dosage: UNK
     Route: 065

REACTIONS (3)
  - Blood bilirubin increased [Unknown]
  - Liver function test increased [Unknown]
  - Drug interaction [Unknown]
